FAERS Safety Report 4307884-6 (Version None)
Quarter: 2004Q1

REPORT INFORMATION
  Report Type: 
  Country: None (occurrence: None)
  Receive Date: 20040226
  Receipt Date: 20030924
  Transmission Date: 20041129
  Serious: Yes (Other)
  Sender: FDA-Public Use
  Company Number: 2002094318

PATIENT
  Age: 51 Year
  Sex: Male

DRUGS (3)
  1. CELEBREX [Suspect]
     Indication: ARTHRITIS
     Dosage: 200 MG, QD, UNK
     Dates: start: 19990528, end: 20000201
  2. VIOXX [Suspect]
     Dosage: 12.5 MG, QD, UNK
     Dates: start: 20000822, end: 20010610
  3. LIDEX (FLUCINONIDE) [Concomitant]

REACTIONS (4)
  - CARDIAC DISORDER [None]
  - DERMATITIS [None]
  - DRUG INEFFECTIVE [None]
  - HYPERSENSITIVITY [None]
